FAERS Safety Report 14099767 (Version 4)
Quarter: 2017Q4

REPORT INFORMATION
  Report Type: Spontaneous
  Country: DE (occurrence: DE)
  Receive Date: 20171017
  Receipt Date: 20171102
  Transmission Date: 20180321
  Serious: Yes (Death, Other)
  Sender: FDA-Public Use
  Company Number: DE-PFIZER INC-2017443310

PATIENT
  Age: 47 Year
  Sex: Female

DRUGS (7)
  1. CORDAREX [Suspect]
     Active Substance: AMIODARONE
     Indication: SYNCOPE
  2. CORDAREX [Suspect]
     Active Substance: AMIODARONE
     Indication: HYPERTROPHIC CARDIOMYOPATHY
     Dosage: 300 MG, DAILY
     Route: 048
     Dates: end: 198511
  3. DISOPYRAMIDE [Concomitant]
     Active Substance: DISOPYRAMIDE
     Indication: VENTRICULAR TACHYCARDIA
     Dosage: UNK
  4. CORDAREX [Suspect]
     Active Substance: AMIODARONE
     Indication: ATRIAL FIBRILLATION
  5. CORDAREX [Suspect]
     Active Substance: AMIODARONE
     Indication: VENTRICULAR TACHYCARDIA
  6. DISOPYRAMIDE [Concomitant]
     Active Substance: DISOPYRAMIDE
     Indication: SYNCOPE
  7. DISOPYRAMIDE [Concomitant]
     Active Substance: DISOPYRAMIDE
     Indication: ATRIAL FIBRILLATION

REACTIONS (3)
  - Pneumonia [Fatal]
  - Liver injury [Fatal]
  - Pulmonary fibrosis [Fatal]

NARRATIVE: CASE EVENT DATE: 198511
